FAERS Safety Report 11801088 (Version 1)
Quarter: 2015Q4

REPORT INFORMATION
  Report Type: Other
  Country: EG (occurrence: EG)
  Receive Date: 20151204
  Receipt Date: 20151204
  Transmission Date: 20160305
  Serious: Yes (Life-Threatening, Hospitalization)
  Sender: FDA-Public Use
  Company Number: EG-LUPIN PHARMACEUTICALS INC.-2015-03901

PATIENT
  Age: 2 Year
  Sex: Female

DRUGS (3)
  1. CEFOPERAZONE [Suspect]
     Active Substance: CEFOPERAZONE
     Indication: UPPER RESPIRATORY TRACT INFECTION
     Route: 065
  2. DICLOFENAC SODIUM. [Suspect]
     Active Substance: DICLOFENAC SODIUM
     Indication: UPPER RESPIRATORY TRACT INFECTION
     Route: 065
  3. SULTAMICILLIN [Suspect]
     Active Substance: SULTAMICILLIN
     Indication: UPPER RESPIRATORY TRACT INFECTION
     Route: 065

REACTIONS (1)
  - Drug reaction with eosinophilia and systemic symptoms [Recovering/Resolving]
